FAERS Safety Report 8570754-1 (Version None)
Quarter: 2012Q3

REPORT INFORMATION
  Report Type: 
  Country: None (occurrence: None)
  Receive Date: 20120805
  Receipt Date: 20120731
  Transmission Date: 20120928
  Serious: No
  Sender: FDA-Public Use
  Company Number: US-009507513-1208USA000464

PATIENT

DRUGS (2)
  1. NEXPLANON [Suspect]
     Indication: CONTRACEPTION
     Dosage: UNK
     Route: 059
     Dates: start: 20120731, end: 20120731
  2. NEXPLANON [Suspect]
     Dosage: 68 MG, 3 YEARS
     Route: 059
     Dates: start: 20120731

REACTIONS (2)
  - COMPLICATION OF DEVICE INSERTION [None]
  - NO ADVERSE EVENT [None]
